FAERS Safety Report 14092744 (Version 1)
Quarter: 2017Q4

REPORT INFORMATION
  Report Type: Spontaneous
  Country: US (occurrence: US)
  Receive Date: 20171016
  Receipt Date: 20171016
  Transmission Date: 20180321
  Serious: No
  Sender: FDA-Public Use
  Company Number: US-GLAXOSMITHKLINE-US2017157199

PATIENT
  Sex: Female

DRUGS (1)
  1. ABREVA [Suspect]
     Active Substance: DOCOSANOL
     Indication: ORAL HERPES
     Dosage: UNK, USED 5 TIMES A DAY
     Dates: start: 20171003, end: 20171008

REACTIONS (4)
  - Condition aggravated [Unknown]
  - Inadequate aseptic technique in use of product [Unknown]
  - Oral herpes [Unknown]
  - Wrong technique in product usage process [Unknown]
